FAERS Safety Report 6114500-X (Version None)
Quarter: 2009Q1

REPORT INFORMATION
  Report Type: 
  Country: None (occurrence: None)
  Receive Date: 20090313
  Receipt Date: 20090306
  Transmission Date: 20090719
  Serious: Yes (Other)
  Sender: FDA-Public Use
  Company Number: IT-ALLERGAN-0902725US

PATIENT
  Sex: Female

DRUGS (5)
  1. BOTOX [Suspect]
     Indication: MUSCLE SPASTICITY
     Dosage: UNK, SINGLE
     Route: 051
     Dates: start: 20080701, end: 20080701
  2. BOTOX [Suspect]
     Dosage: UNK, SINGLE
     Route: 051
     Dates: start: 20090116, end: 20090116
  3. ZOLOFT [Concomitant]
  4. CARDIRENE [Concomitant]
  5. NATECAL [Concomitant]

REACTIONS (3)
  - BRONCHOSPASM [None]
  - PRURITUS [None]
  - URTICARIA PAPULAR [None]
